FAERS Safety Report 9506535 (Version 2)
Quarter: 2013Q4

REPORT INFORMATION
  Report Type: Report from Study
  Country: BR (occurrence: BR)
  Receive Date: 20130906
  Receipt Date: 20131218
  Transmission Date: 20140711
  Serious: Yes (Other)
  Sender: FDA-Public Use
  Company Number: PHHY2013BR098182

PATIENT
  Age: 72 Year
  Sex: Female
  Weight: 55 kg

DRUGS (6)
  1. ACLASTA [Suspect]
     Indication: OSTEOPOROSIS
     Dosage: 5 MG, 1 APPLICATION YEARLY
     Route: 042
     Dates: start: 2011
  2. ARTROLIVE [Concomitant]
     Indication: OSTEOARTHRITIS
     Dosage: 2 DF, DAILY
     Route: 048
     Dates: start: 2008
  3. SIMVASTATIN [Concomitant]
     Indication: BLOOD CHOLESTEROL INCREASED
     Dosage: 10 MG (1 TABLET), QD (AT NIGHT)
     Route: 048
     Dates: start: 2003
  4. OSCAL D                            /00944201/ [Concomitant]
     Indication: BONE DISORDER
     Dosage: 1 DF, DAILY
     Route: 048
  5. DEPURA [Concomitant]
     Dosage: 10 DRP, DAILY
     Route: 048
     Dates: start: 2012
  6. VITAMIN C [Concomitant]
     Dosage: UNK UKN, UNK
     Dates: start: 2011

REACTIONS (4)
  - Radius fracture [Recovering/Resolving]
  - Wrist fracture [Recovering/Resolving]
  - Fall [Recovering/Resolving]
  - Hypokinesia [Recovering/Resolving]
